FAERS Safety Report 5149609-0 (Version None)
Quarter: 2006Q4

REPORT INFORMATION
  Report Type: 
  Country: None (occurrence: None)
  Receive Date: 20061113
  Receipt Date: 20060612
  Transmission Date: 20070319
  Serious: No
  Sender: FDA-Public Use
  Company Number: US-GLAXOSMITHKLINE-A0608645A

PATIENT
  Age: 80 Year
  Sex: Female

DRUGS (2)
  1. COREG [Suspect]
     Dosage: 6.25MG TWICE PER DAY
     Route: 048
  2. ALTACE [Concomitant]

REACTIONS (4)
  - MUSCULOSKELETAL STIFFNESS [None]
  - OEDEMA PERIPHERAL [None]
  - PAIN IN EXTREMITY [None]
  - RASH [None]
